FAERS Safety Report 5161808-0 (Version None)
Quarter: 2006Q4

REPORT INFORMATION
  Report Type: 
  Country: None (occurrence: None)
  Receive Date: 20061130
  Receipt Date: 20061120
  Transmission Date: 20070319
  Serious: Yes (Death, Hospitalization)
  Sender: FDA-Public Use
  Company Number: GB-AMGEN-UK200935

PATIENT
  Sex: Female
  Weight: 71 kg

DRUGS (3)
  1. NEULASTA [Suspect]
     Indication: CHEMOTHERAPY
     Route: 065
     Dates: start: 20060331
  2. XELODA [Suspect]
     Route: 048
     Dates: start: 20060526
  3. EPIRUBICIN [Concomitant]
     Route: 065
     Dates: start: 20060331

REACTIONS (3)
  - CEREBROVASCULAR ACCIDENT [None]
  - ILEUS [None]
  - ISCHAEMIA [None]
